FAERS Safety Report 23795955 (Version 1)
Quarter: 2024Q2

REPORT INFORMATION
  Report Type: Spontaneous
  Country: US (occurrence: US)
  Receive Date: 20240429
  Receipt Date: 20240429
  Transmission Date: 20240715
  Serious: Yes (Other)
  Sender: FDA-Public Use
  Company Number: US-JNJFOC-20240471678

PATIENT
  Age: 87 Year
  Sex: Female

DRUGS (1)
  1. XARELTO [Suspect]
     Active Substance: RIVAROXABAN
     Indication: Pulmonary embolism
     Route: 048
     Dates: start: 2023

REACTIONS (4)
  - Pneumonia [Unknown]
  - Epistaxis [Recovered/Resolved]
  - Hypersensitivity [Unknown]
  - Haemoptysis [Unknown]

NARRATIVE: CASE EVENT DATE: 20240401
